FAERS Safety Report 9344181 (Version 1)
Quarter: 2013Q2

REPORT INFORMATION
  Report Type: Spontaneous
  Country: US (occurrence: US)
  Receive Date: 20130612
  Receipt Date: 20130612
  Transmission Date: 20140414
  Serious: Yes (Other)
  Sender: FDA-Public Use
  Company Number: US-PFIZER INC-2013175809

PATIENT
  Age: 60 Year
  Sex: Male
  Weight: 107.48 kg

DRUGS (1)
  1. LYRICA [Suspect]
     Indication: NERVE INJURY
     Dosage: 375 MG, 1X/DAY
     Route: 048
     Dates: start: 2004

REACTIONS (2)
  - Renal disorder [Unknown]
  - Impaired work ability [Unknown]
